FAERS Safety Report 6315102-2 (Version None)
Quarter: 2009Q3

REPORT INFORMATION
  Report Type: 
  Country: None (occurrence: None)
  Receive Date: 20090819
  Receipt Date: 20090206
  Transmission Date: 20100115
  Serious: Yes (Hospitalization, Other)
  Sender: FDA-Public Use
  Company Number: US-PFIZER INC-2008046160

PATIENT
  Sex: Female

DRUGS (8)
  1. CHANTIX [Suspect]
     Route: 048
  2. WARFARIN SODIUM [Concomitant]
  3. BUPROPION HYDROCHLORIDE [Concomitant]
  4. AMIODARONE [Concomitant]
  5. LOVASTATIN [Concomitant]
  6. CARTIA XT [Concomitant]
  7. METFORMIN [Concomitant]
  8. HYDROCODONE [Concomitant]

REACTIONS (5)
  - ARTHRITIS [None]
  - BLADDER OPERATION [None]
  - CARDIAC DISORDER [None]
  - CELLULITIS [None]
  - DIABETES MELLITUS [None]
